FAERS Safety Report 12381146 (Version 1)
Quarter: 2016Q2

REPORT INFORMATION
  Report Type: Spontaneous
  Country: US (occurrence: None)
  Receive Date: 20160517
  Receipt Date: 20160517
  Transmission Date: 20160815
  Serious: No
  Sender: FDA-Public Use
  Company Number: None

PATIENT
  Age: 18 Year
  Sex: Female

DRUGS (1)
  1. HUMIRA [Suspect]
     Active Substance: ADALIMUMAB
     Indication: CROHN^S DISEASE
     Dosage: 40MG/0.8ML EVERY 14 DAYS SUBCUTANEOUSLY
     Route: 058
     Dates: start: 20150105

REACTIONS (4)
  - Acne [None]
  - Dry skin [None]
  - Anger [None]
  - Mood altered [None]

NARRATIVE: CASE EVENT DATE: 20160227
